FAERS Safety Report 5429897-3 (Version None)
Quarter: 2007Q3

REPORT INFORMATION
  Report Type: 
  Country: None (occurrence: None)
  Receive Date: 20070829
  Receipt Date: 20070821
  Transmission Date: 20080115
  Serious: Yes (Hospitalization)
  Sender: FDA-Public Use
  Company Number: KR-PFIZER INC-2006044686

PATIENT
  Sex: Female
  Weight: 40 kg

DRUGS (11)
  1. SU-011,248 [Suspect]
     Indication: GASTROINTESTINAL STROMAL TUMOUR
     Route: 048
  2. MAGNESIUM OXIDE [Concomitant]
     Dosage: DAILY DOSE:1500MG-FREQ:DAILY
     Route: 048
  3. ALPRAZOLAM [Concomitant]
     Dosage: DAILY DOSE:.25MG-FREQ:DAILY
     Route: 048
     Dates: start: 20060117, end: 20060301
  4. MORPHINE SULFATE [Concomitant]
     Dosage: DAILY DOSE:20MG-FREQ:DAILY
     Route: 048
     Dates: start: 20060207, end: 20060301
  5. TRANEXAMIC ACID [Concomitant]
     Dosage: DAILY DOSE:750MG-FREQ:DAILY
     Route: 048
     Dates: start: 20060215, end: 20060301
  6. CALCIUM POLYSTYRENE SULFONATE [Concomitant]
     Dosage: DAILY DOSE:150GRAM-FREQ:DAILY
     Route: 054
     Dates: start: 20060323, end: 20060323
  7. LACTULOSE [Concomitant]
     Dosage: DAILY DOSE:200ML-FREQ:DAILY
     Route: 054
     Dates: start: 20060323, end: 20060323
  8. TRAMADOL HCL [Concomitant]
     Dosage: DAILY DOSE:200MG-FREQ:DAILY
     Route: 042
  9. FUROSEMIDE [Concomitant]
     Dosage: DAILY DOSE:20MG-FREQ:DAILY
     Route: 042
  10. LABETALOL HYDROCHLORIDE [Concomitant]
     Dosage: DAILY DOSE:100MG-FREQ:DAILY
     Route: 042
  11. PANTOPRAZOLE SODIUM [Concomitant]
     Dosage: DAILY DOSE:120MG-FREQ:DAILY
     Route: 042

REACTIONS (7)
  - ANOREXIA [None]
  - ASTHENIA [None]
  - AZOTAEMIA [None]
  - DEHYDRATION [None]
  - HYPERKALAEMIA [None]
  - HYPERTENSION [None]
  - RENAL FAILURE [None]
